FAERS Safety Report 5366201-3 (Version None)
Quarter: 2007Q2

REPORT INFORMATION
  Report Type: 
  Country: None (occurrence: None)
  Receive Date: 20070619
  Receipt Date: 20070605
  Transmission Date: 20071010
  Serious: Yes (Hospitalization)
  Sender: FDA-Public Use
  Company Number: POMP-11070

PATIENT
  Age: 1 Year
  Sex: Male

DRUGS (4)
  1. MYOZYME [Suspect]
     Indication: GLYCOGEN STORAGE DISEASE TYPE II
     Dosage: 20 MG/KG Q2WKS IV
     Route: 042
     Dates: start: 20060101, end: 20070501
  2. ALPHA-GLUCOSIDASE (HUMAN, RECOMBINANT, CHO CELLS, GENZYME) MFR. GENZYM [Suspect]
     Indication: GLYCOGEN STORAGE DISEASE TYPE II
     Dosage: 20 MG/KG Q2WKS IV
     Route: 042
     Dates: start: 20060113, end: 20060101
  3. CAPTOPRIL [Concomitant]
  4. STEROIDS [Concomitant]

REACTIONS (12)
  - ABASIA [None]
  - ASPIRATION [None]
  - ASTHENIA [None]
  - ATELECTASIS [None]
  - BLOOD IMMUNOGLOBULIN G INCREASED [None]
  - DYSPHAGIA [None]
  - HYPERTENSION [None]
  - HYPERTONIA [None]
  - HYPOXIA [None]
  - RESPIRATORY DISTRESS [None]
  - RESPIRATORY SYNCYTIAL VIRUS INFECTION [None]
  - VENTRICULAR HYPERTROPHY [None]
